FAERS Safety Report 7224141-9 (Version None)
Quarter: 2011Q1

REPORT INFORMATION
  Report Type: 
  Country: None (occurrence: None)
  Receive Date: 20110113
  Receipt Date: 20110110
  Transmission Date: 20110831
  Serious: No
  Sender: FDA-Public Use
  Company Number: US-BIOGENIDEC-2011BI001038

PATIENT
  Age: 20 Year
  Sex: Female

DRUGS (2)
  1. PERCOCET [Concomitant]
     Indication: PAIN
     Dates: start: 20101001
  2. AVONEX [Suspect]
     Indication: MULTIPLE SCLEROSIS
     Route: 030
     Dates: start: 20101230

REACTIONS (3)
  - INFLUENZA LIKE ILLNESS [None]
  - BACK PAIN [None]
  - PAIN IN EXTREMITY [None]
